FAERS Safety Report 5045746-X (Version None)
Quarter: 2006Q2

REPORT INFORMATION
  Report Type: 
  Country: None (occurrence: None)
  Receive Date: 20060601
  Receipt Date: 20060411
  Transmission Date: 20061013
  Serious: No
  Sender: FDA-Public Use
  Company Number: 2006-BP-04178BP

PATIENT
  Sex: Male

DRUGS (3)
  1. SPIRIVA [Suspect]
     Indication: CHRONIC OBSTRUCTIVE PULMONARY DISEASE
     Dosage: 18 MCG (18 MCG),IH
     Dates: start: 20060201, end: 20060407
  2. FORADIL [Concomitant]
  3. LISINOPRIL [Concomitant]

REACTIONS (4)
  - HEADACHE [None]
  - VISION BLURRED [None]
  - VISUAL DISTURBANCE [None]
  - VISUAL FIELD DEFECT [None]
